FAERS Safety Report 10189751 (Version 1)
Quarter: 2014Q2

REPORT INFORMATION
  Report Type: Spontaneous
  Country: US (occurrence: US)
  Receive Date: 20140522
  Receipt Date: 20140522
  Transmission Date: 20141212
  Serious: Yes (Other)
  Sender: FDA-Public Use
  Company Number: US-BAYER-2014-072563

PATIENT
  Age: 49 Year
  Sex: Female

DRUGS (1)
  1. BAYER GENUINE ASPIRIN ORIGINAL STRENGTH [Suspect]

REACTIONS (4)
  - Gastric haemorrhage [None]
  - Drug hypersensitivity [None]
  - Epigastric discomfort [None]
  - Muscle spasms [None]
